FAERS Safety Report 9314441 (Version 1)
Quarter: 2013Q2

REPORT INFORMATION
  Report Type: Spontaneous
  Country: US (occurrence: US)
  Receive Date: 20130529
  Receipt Date: 20130529
  Transmission Date: 20140414
  Serious: No
  Sender: FDA-Public Use
  Company Number: US-PFIZER INC-2013159768

PATIENT
  Age: 60 Year
  Sex: Female

DRUGS (1)
  1. ADVIL [Suspect]
     Dosage: AT 3 ADVIL AT 9PM AND THEN TOOK ANOTHER 3 AROUND 4 AT MORNING, UNK

REACTIONS (4)
  - Drug ineffective [Unknown]
  - Inappropriate schedule of drug administration [Unknown]
  - Pain [Unknown]
  - Headache [Unknown]
